FAERS Safety Report 7399181-X (Version None)
Quarter: 2011Q2

REPORT INFORMATION
  Report Type: 
  Country: None (occurrence: None)
  Receive Date: 20110407
  Receipt Date: 20110329
  Transmission Date: 20111010
  Serious: No
  Sender: FDA-Public Use
  Company Number: DE-PFIZER INC-2011046649

PATIENT
  Age: 41 Year
  Sex: Female

DRUGS (1)
  1. SUTENT [Suspect]
     Dosage: 50 MG, 1X/DAY, WITH 2 WEEKS PAUSE
     Dates: start: 20100801

REACTIONS (1)
  - NO ADVERSE EVENT [None]
